FAERS Safety Report 6370974-0 (Version None)
Quarter: 2009Q3

REPORT INFORMATION
  Report Type: 
  Country: None (occurrence: None)
  Receive Date: 20090923
  Receipt Date: 20090909
  Transmission Date: 20100115
  Serious: Yes (Hospitalization)
  Sender: FDA-Public Use
  Company Number: DE-CELGENEUS-062-21880-09072271

PATIENT
  Sex: Male
  Weight: 78 kg

DRUGS (3)
  1. REVLIMID [Suspect]
     Indication: MULTIPLE MYELOMA
     Route: 048
     Dates: start: 20080815, end: 20080901
  2. REVLIMID [Suspect]
     Route: 048
     Dates: start: 20080915, end: 20080929
  3. VESICARE [Concomitant]
     Route: 065

REACTIONS (6)
  - ANAEMIA [None]
  - BACK PAIN [None]
  - CARDIAC FAILURE [None]
  - DYSPNOEA EXERTIONAL [None]
  - GENERAL PHYSICAL HEALTH DETERIORATION [None]
  - PAIN [None]
